FAERS Safety Report 25222136 (Version 1)
Quarter: 2025Q2

REPORT INFORMATION
  Report Type: Report from Study
  Country: VN (occurrence: VN)
  Receive Date: 20250421
  Receipt Date: 20250421
  Transmission Date: 20250717
  Serious: Yes (Death, Other)
  Sender: JOHNSON AND JOHNSON
  Company Number: VN-JNJFOC-20250422258

PATIENT

DRUGS (4)
  1. REMICADE [Suspect]
     Active Substance: INFLIXIMAB
     Indication: Inflammatory bowel disease
     Route: 041
  2. AZATHIOPRINE [Concomitant]
     Active Substance: AZATHIOPRINE
  3. METHOTREXATE [Concomitant]
     Active Substance: METHOTREXATE
  4. MESALAMINE [Concomitant]
     Active Substance: MESALAMINE

REACTIONS (7)
  - Sepsis [Fatal]
  - Clostridium difficile infection [Unknown]
  - Tuberculosis [Unknown]
  - Hepatitis B [Unknown]
  - Gastrointestinal infection [Unknown]
  - Cytomegalovirus infection [Unknown]
  - Drug ineffective [Unknown]
